FAERS Safety Report 21260488 (Version 1)
Quarter: 2022Q3

REPORT INFORMATION
  Report Type: Spontaneous
  Country: US (occurrence: US)
  Receive Date: 20220826
  Receipt Date: 20220826
  Transmission Date: 20221027
  Serious: Yes (Hospitalization, Other)
  Sender: FDA-Public Use
  Company Number: US-PFIZER INC-PV202200044208

PATIENT
  Age: 71 Year
  Sex: Male

DRUGS (6)
  1. BEVACIZUMAB [Suspect]
     Active Substance: BEVACIZUMAB
     Indication: Brain oedema
     Dosage: UNK UNK, CYCLIC (SIX CYCLES)
  2. BEVACIZUMAB [Suspect]
     Active Substance: BEVACIZUMAB
     Indication: Metastases to central nervous system
  3. IPILIMUMAB [Concomitant]
     Active Substance: IPILIMUMAB
     Indication: Metastases to central nervous system
     Dosage: UNK UNK, CYCLIC (SEVEN CYCLES)
  4. IPILIMUMAB [Concomitant]
     Active Substance: IPILIMUMAB
     Indication: Metastases to central nervous system
  5. NIVOLUMAB [Concomitant]
     Active Substance: NIVOLUMAB
     Indication: Metastases to central nervous system
     Dosage: UNK UNK, CYCLIC (SEVEN CYCLES)
  6. NIVOLUMAB [Concomitant]
     Active Substance: NIVOLUMAB
     Indication: Metastases to central nervous system

REACTIONS (3)
  - Hepatocellular injury [Unknown]
  - Abdominal pain [Unknown]
  - Off label use [Unknown]
